FAERS Safety Report 20429825 (Version 1)
Quarter: 2022Q1

REPORT INFORMATION
  Report Type: Spontaneous
  Country: NL (occurrence: NL)
  Receive Date: 20220204
  Receipt Date: 20220204
  Transmission Date: 20220423
  Serious: Yes (Other)
  Sender: FDA-Public Use
  Company Number: NL-LRB-00368774

PATIENT
  Age: 17 Year
  Sex: Male
  Weight: 64 kg

DRUGS (1)
  1. ALBUTEROL [Suspect]
     Active Substance: ALBUTEROL
     Indication: Bronchospasm
     Dosage: 2 DOSAGE FORM,100MG AEROSOL, 2MAAL 4X PER DAG, 100MG PER PUFJE ( 2 PUFJES)
     Route: 065
     Dates: start: 2019

REACTIONS (4)
  - Hallucination [Not Recovered/Not Resolved]
  - Palpitations [Not Recovered/Not Resolved]
  - Tremor [Not Recovered/Not Resolved]
  - Headache [Not Recovered/Not Resolved]

NARRATIVE: CASE EVENT DATE: 20191212
